FAERS Safety Report 19213830 (Version 1)
Quarter: 2021Q2

REPORT INFORMATION
  Report Type: Spontaneous
  Country: US (occurrence: US)
  Receive Date: 20210504
  Receipt Date: 20210504
  Transmission Date: 20210717
  Serious: No
  Sender: FDA-Public Use
  Company Number: US-ROCHE-2618684

PATIENT

DRUGS (1)
  1. AVASTIN [Suspect]
     Active Substance: BEVACIZUMAB
     Indication: NEOVASCULAR AGE-RELATED MACULAR DEGENERATION
     Dosage: AS NEEDED
     Route: 050

REACTIONS (4)
  - Vitreous floaters [Unknown]
  - Intentional product use issue [Unknown]
  - Off label use [Unknown]
  - Vision blurred [Unknown]
